APPROVED DRUG PRODUCT: BEPADIN
Active Ingredient: BEPRIDIL HYDROCHLORIDE
Strength: 400MG
Dosage Form/Route: TABLET;ORAL
Application: N019001 | Product #003
Applicant: MEDPOINTE PHARMACEUTICALS MEDPOINTE HEALTHCARE INC
Approved: Dec 28, 1990 | RLD: No | RS: No | Type: DISCN